FAERS Safety Report 21161772 (Version 3)
Quarter: 2022Q3

REPORT INFORMATION
  Report Type: Spontaneous
  Country: CN (occurrence: CN)
  Receive Date: 20220802
  Receipt Date: 20220822
  Transmission Date: 20221026
  Serious: Yes (Other)
  Sender: FDA-Public Use
  Company Number: CN-ABBVIE-22K-035-4489221-00

PATIENT

DRUGS (2)
  1. LOPINAVIR\RITONAVIR [Interacting]
     Active Substance: LOPINAVIR\RITONAVIR
     Indication: Acquired immunodeficiency syndrome
     Route: 048
  2. LAMIVUDINE [Interacting]
     Active Substance: LAMIVUDINE
     Indication: Acquired immunodeficiency syndrome
     Route: 065

REACTIONS (8)
  - Myelosuppression [Unknown]
  - Toxicity to various agents [Unknown]
  - Drug interaction [Unknown]
  - Renal injury [Unknown]
  - Gastrointestinal disorder [Unknown]
  - Hepatic function abnormal [Unknown]
  - Rash [Unknown]
  - Renal impairment [Unknown]
